FAERS Safety Report 25945065 (Version 1)
Quarter: 2025Q4

REPORT INFORMATION
  Report Type: Spontaneous
  Country: US (occurrence: US)
  Receive Date: 20251021
  Receipt Date: 20251021
  Transmission Date: 20260117
  Serious: No
  Sender: Phathom Pharmaceuticals
  Company Number: US-PHATHOM PHARMACEUTICALS INC.-2025PHT02160

PATIENT
  Age: 80 Year
  Sex: Female

DRUGS (15)
  1. VOQUEZNA [Suspect]
     Active Substance: VONOPRAZAN FUMARATE
     Indication: Gastrooesophageal reflux disease
     Dosage: 10 MG, 1X/DAY
     Route: 048
     Dates: start: 20250721, end: 20250723
  2. VOQUEZNA [Suspect]
     Active Substance: VONOPRAZAN FUMARATE
     Indication: Oesophagitis
  3. REPATHA [Concomitant]
     Active Substance: EVOLOCUMAB
  4. SOLIFENACIN [Concomitant]
     Active Substance: SOLIFENACIN
  5. MYRBETRIQ [Concomitant]
     Active Substance: MIRABEGRON
  6. MONTELUKAST [Concomitant]
     Active Substance: MONTELUKAST
  7. METOPROLOL TARTRATE [Concomitant]
     Active Substance: METOPROLOL TARTRATE
  8. LOSARTAN [Concomitant]
     Active Substance: LOSARTAN
  9. LEVOTHYROXINE [Concomitant]
     Active Substance: LEVOTHYROXINE
  10. KEYTRUDA [Concomitant]
     Active Substance: PEMBROLIZUMAB
  11. HYDROCHLOROTHIAZIDE [Concomitant]
     Active Substance: HYDROCHLOROTHIAZIDE
  12. DICYCLOMINE [Concomitant]
     Active Substance: DICYCLOMINE HYDROCHLORIDE
  13. BRILINTA [Concomitant]
     Active Substance: TICAGRELOR
  14. ASPIRIN [Concomitant]
     Active Substance: ASPIRIN
  15. AMLODIPINE [Concomitant]
     Active Substance: AMLODIPINE BESYLATE

REACTIONS (2)
  - Illness [Unknown]
  - Drug ineffective [Recovered/Resolved]

NARRATIVE: CASE EVENT DATE: 20250701
